FAERS Safety Report 16408448 (Version 1)
Quarter: 2019Q2

REPORT INFORMATION
  Report Type: Spontaneous
  Country: GB (occurrence: GB)
  Receive Date: 20190610
  Receipt Date: 20190610
  Transmission Date: 20190711
  Serious: Yes (Other)
  Sender: FDA-Public Use
  Company Number: GB-BIO PRODUCTS LABORATORY LTD-2067974

PATIENT
  Age: 30 Year
  Sex: Male

DRUGS (1)
  1. GENERIC IVIG [Suspect]
     Active Substance: HUMAN IMMUNOGLOBULIN G
     Indication: EPIDERMOLYSIS BULLOSA
     Route: 042

REACTIONS (2)
  - Haemolytic anaemia [Recovered/Resolved]
  - Off label use [Recovered/Resolved]
